FAERS Safety Report 16462738 (Version 4)
Quarter: 2019Q3

REPORT INFORMATION
  Report Type: Spontaneous
  Country: FR (occurrence: FR)
  Receive Date: 20190621
  Receipt Date: 20190920
  Transmission Date: 20191004
  Serious: Yes (Life-Threatening, Hospitalization, Other)
  Sender: FDA-Public Use
  Company Number: FR-ACCORD-134214

PATIENT
  Age: 12 Year
  Sex: Female
  Weight: 34.2 kg

DRUGS (11)
  1. LARGACTIL [Suspect]
     Active Substance: CHLORPROMAZINE
     Indication: PROPHYLAXIS OF NAUSEA AND VOMITING
     Dosage: STRENGTH:25 MG/5 ML, SOLUTION FOR INJECTION IN AMPOULE
     Route: 042
     Dates: start: 20160720, end: 20160722
  2. RIVOTRIL [Concomitant]
     Active Substance: CLONAZEPAM
     Indication: PRODUCT USED FOR UNKNOWN INDICATION
     Route: 065
  3. GABAPENTIN. [Concomitant]
     Active Substance: GABAPENTIN
     Indication: PRODUCT USED FOR UNKNOWN INDICATION
     Route: 065
  4. FORLAX [Concomitant]
     Active Substance: POLYETHYLENE GLYCOL 4000
     Indication: PRODUCT USED FOR UNKNOWN INDICATION
     Route: 065
  5. IFOSFAMIDE. [Suspect]
     Active Substance: IFOSFAMIDE
     Indication: OSTEOSARCOMA
     Dosage: STRENGTH: 40 MG/ML, SOLUTION FOR INFUSION
     Route: 042
     Dates: start: 20160720, end: 20160722
  6. ZOPHREN [Suspect]
     Active Substance: ONDANSETRON
     Indication: PROPHYLAXIS OF NAUSEA AND VOMITING
     Dosage: STRENGTH:2 MG/ML, SOLUTION FOR INJECTION IN AMPOULE (I.V.),16 MG PER DAY
     Route: 042
     Dates: start: 20160720, end: 20160722
  7. MESNA. [Concomitant]
     Active Substance: MESNA
     Indication: PRODUCT USED FOR UNKNOWN INDICATION
     Dosage: STRENGTH: 100 MG/ML, INJECTABLE SOLUTION FOR INFUSION
     Route: 065
  8. FRAGMINE [Concomitant]
     Active Substance: DALTEPARIN SODIUM
     Indication: PRODUCT USED FOR UNKNOWN INDICATION
     Route: 065
  9. ELUDRIL [Concomitant]
     Route: 065
  10. METHOTREXATE. [Suspect]
     Active Substance: METHOTREXATE
     Indication: OSTEOSARCOMA
     Route: 042
     Dates: start: 201602, end: 201606
  11. ETOPOPHOS [Suspect]
     Active Substance: ETOPOSIDE PHOSPHATE
     Indication: OSTEOSARCOMA
     Dosage: STRENGTH: 100 MG, LYOPHILISATE FOR PARENTERAL USE, 89 MG, BID
     Route: 042
     Dates: start: 20160722, end: 20160722

REACTIONS (6)
  - Contraindicated product administered [Unknown]
  - Vision blurred [Recovering/Resolving]
  - Anal incontinence [Recovered/Resolved]
  - Encephalopathy [Recovered/Resolved]
  - Urinary incontinence [Recovered/Resolved]
  - Coma [Recovered/Resolved]

NARRATIVE: CASE EVENT DATE: 20160722
